FAERS Safety Report 11631039 (Version 3)
Quarter: 2016Q1

REPORT INFORMATION
  Report Type: Report from Study
  Country: BR (occurrence: BR)
  Receive Date: 20151014
  Receipt Date: 20160314
  Transmission Date: 20160525
  Serious: Yes (Hospitalization)
  Sender: FDA-Public Use
  Company Number: PHHY2015BR124123

PATIENT
  Sex: Female
  Weight: 63 kg

DRUGS (1)
  1. EXJADE [Suspect]
     Active Substance: DEFERASIROX
     Indication: MYELODYSPLASTIC SYNDROME
     Dosage: 40 MG/KG, QD (2500 MG ONCE DAILY)
     Route: 048

REACTIONS (11)
  - Gingival bleeding [Recovering/Resolving]
  - Haemorrhage subcutaneous [Recovering/Resolving]
  - Platelet count decreased [Recovering/Resolving]
  - Nausea [Recovering/Resolving]
  - Full blood count decreased [Unknown]
  - Retching [Unknown]
  - Chronic myeloid leukaemia [Unknown]
  - Kidney infection [Unknown]
  - Epigastric discomfort [Unknown]
  - Decreased appetite [Recovering/Resolving]
  - Asthenia [Recovering/Resolving]
